FAERS Safety Report 5466512-7 (Version None)
Quarter: 2007Q3

REPORT INFORMATION
  Report Type: 
  Country: None (occurrence: None)
  Receive Date: 20070820
  Receipt Date: 20070607
  Transmission Date: 20080115
  Serious: No
  Sender: FDA-Public Use
  Company Number: WAES 0706USA01355

PATIENT
  Age: 60 Year
  Sex: Female

DRUGS (5)
  1. JANUVIA [Suspect]
     Indication: DIABETES MELLITUS
     Dosage: 100 MG/DAILY/PO
     Route: 048
     Dates: start: 20070531
  2. ACTOS [Concomitant]
  3. AVALIDE [Concomitant]
  4. GLUCOPHAGE [Concomitant]
  5. PREVACID [Concomitant]

REACTIONS (1)
  - WEIGHT INCREASED [None]
